FAERS Safety Report 13184265 (Version 1)
Quarter: 2017Q1

REPORT INFORMATION
  Report Type: Spontaneous
  Country: US (occurrence: US)
  Receive Date: 20170203
  Receipt Date: 20170203
  Transmission Date: 20170428
  Serious: No
  Sender: FDA-Public Use
  Company Number: US-TEVA-723475ACC

PATIENT
  Age: 73 Year
  Sex: Female

DRUGS (1)
  1. ROSUVASTATIN TABLETS 20 MG [Suspect]
     Active Substance: ROSUVASTATIN

REACTIONS (1)
  - Essential tremor [Unknown]
